FAERS Safety Report 11758102 (Version 1)
Quarter: 2015Q4

REPORT INFORMATION
  Report Type: Spontaneous
  Country: US (occurrence: None)
  Receive Date: 20151119
  Receipt Date: 20151119
  Transmission Date: 20160304
  Serious: Yes (Death, Hospitalization)
  Sender: FDA-Public Use
  Company Number: None

PATIENT
  Age: 47 Year
  Sex: Female
  Weight: 101 kg

DRUGS (2)
  1. DAUNORUBICIN [Suspect]
     Active Substance: DAUNORUBICIN
     Dates: end: 20110712
  2. CYTARABINE. [Suspect]
     Active Substance: CYTARABINE
     Dates: end: 20110716

REACTIONS (3)
  - Intraventricular haemorrhage [None]
  - Hydrocephalus [None]
  - Subarachnoid haemorrhage [None]

NARRATIVE: CASE EVENT DATE: 20110727
